FAERS Safety Report 4809150-9 (Version None)
Quarter: 2005Q4

REPORT INFORMATION
  Report Type: 
  Country: None (occurrence: None)
  Receive Date: 20051021
  Receipt Date: 20051014
  Transmission Date: 20060501
  Serious: Yes (Death)
  Sender: FDA-Public Use
  Company Number: 2005-03931

PATIENT
  Age: 40 Year
  Sex: Female

DRUGS (3)
  1. LOXITANE (WATSON LABORATORIES)(LOXAPINE SUCCINATE) CAPSULE [Suspect]
  2. OXAZEPAM [Suspect]
  3. ALCOHOL (ETHANOL) [Suspect]

REACTIONS (3)
  - BLOOD ALCOHOL INCREASED [None]
  - DRUG LEVEL ABOVE THERAPEUTIC [None]
  - DRUG LEVEL INCREASED [None]
